FAERS Safety Report 23339642 (Version 1)
Quarter: 2023Q4

REPORT INFORMATION
  Report Type: Spontaneous
  Country: None (occurrence: US)
  Receive Date: 20231226
  Receipt Date: 20231226
  Transmission Date: 20240109
  Serious: No
  Sender: FDA-Public Use
  Company Number: US-STI Pharma LLC-2149731

PATIENT
  Age: 58 Year
  Sex: Female

DRUGS (4)
  1. ETHAMBUTOL HYDROCHLORIDE [Suspect]
     Active Substance: ETHAMBUTOL HYDROCHLORIDE
     Dates: start: 202202
  2. RIFAMPIN [Concomitant]
     Active Substance: RIFAMPIN
     Dates: start: 202202
  3. AZITHROMYCIN [Concomitant]
     Active Substance: AZITHROMYCIN
     Dates: start: 202202
  4. AMIKACIN [Concomitant]
     Active Substance: AMIKACIN

REACTIONS (1)
  - Adverse drug reaction [Unknown]
